FAERS Safety Report 8772588 (Version 3)
Quarter: 2014Q2

REPORT INFORMATION
  Report Type: Report from Study
  Country: US (occurrence: US)
  Receive Date: 20120905
  Receipt Date: 20140123
  Transmission Date: 20141212
  Serious: Yes (Hospitalization, Other)
  Sender: FDA-Public Use
  Company Number: US-ALEXION PHARMACEUTICALS INC.-A201201632

PATIENT
  Age: 1 Year
  Sex: Female
  Weight: 12 kg

DRUGS (2)
  1. SOLIRIS [Suspect]
     Indication: HAEMOLYTIC URAEMIC SYNDROME
     Dosage: 300 MG, Q2W
     Route: 042
     Dates: start: 201112
  2. EMU CREAM [Concomitant]
     Indication: PREMEDICATION
     Dosage: UNK
     Route: 061

REACTIONS (5)
  - Alpha haemolytic streptococcal infection [Recovered/Resolved]
  - Device related infection [Recovered/Resolved]
  - Bacteraemia [Unknown]
  - Catheter placement [Unknown]
  - Herpes simplex [Unknown]
